FAERS Safety Report 5930351-0 (Version None)
Quarter: 2008Q4

REPORT INFORMATION
  Report Type: 
  Country: None (occurrence: None)
  Receive Date: 20081023
  Receipt Date: 20081017
  Transmission Date: 20090506
  Serious: Yes (Other)
  Sender: FDA-Public Use
  Company Number: 2008SP021106

PATIENT
  Age: 92 Year
  Sex: Female

DRUGS (9)
  1. NITRO-DUR [Suspect]
     Indication: ANGINA PECTORIS
     Dosage: 0.2 MG;TDER 0.4 MG;TDER
     Dates: start: 20070824
  2. METOPROLOL TARTRATE [Concomitant]
  3. ATIVAN [Concomitant]
  4. PANTALOC [Concomitant]
  5. COUMADIN [Concomitant]
  6. ADALAT CC [Concomitant]
  7. ASPIRIN [Concomitant]
  8. ZOCOR [Concomitant]
  9. LASIX [Concomitant]

REACTIONS (1)
  - BREAST CANCER FEMALE [None]
